FAERS Safety Report 6389251-7 (Version None)
Quarter: 2009Q4

REPORT INFORMATION
  Report Type: 
  Country: None (occurrence: None)
  Receive Date: 20091006
  Receipt Date: 20090925
  Transmission Date: 20100525
  Serious: Yes (Other)
  Sender: FDA-Public Use
  Company Number: PHHY2009BR41740

PATIENT
  Age: 77 Year
  Sex: Female

DRUGS (4)
  1. STARFORM [Suspect]
     Indication: TYPE 2 DIABETES MELLITUS
     Dosage: 1 DF, TID
     Route: 048
     Dates: start: 20040617
  2. APROVEL [Concomitant]
     Indication: HYPERTENSION
     Dosage: 0.5 DF PER DAY
     Route: 048
  3. MODURETIC 5-50 [Concomitant]
     Indication: HYPERTENSION
     Dosage: HALF A TABLET THREE TIMES A WEEK
     Route: 048
  4. TENSALIV [Concomitant]
     Indication: HYPERTENSION
     Dosage: 0.5 DF PER DAY
     Route: 048

REACTIONS (1)
  - DYSURIA [None]
